FAERS Safety Report 7625740-2 (Version None)
Quarter: 2011Q3

REPORT INFORMATION
  Report Type: 
  Country: None (occurrence: None)
  Receive Date: 20110721
  Receipt Date: 20110719
  Transmission Date: 20111222
  Serious: Yes (Life-Threatening)
  Sender: FDA-Public Use
  Company Number: DE-B.I. PHARMACEUTICALS,INC./RIDGEFIELD-2011-DE-04148DE

PATIENT
  Age: 71 Year
  Sex: Male

DRUGS (9)
  1. AMLODIPINE [Concomitant]
  2. RAMIPRIL [Concomitant]
  3. ASPIRIN [Concomitant]
     Indication: CORONARY ARTERY DISEASE
     Dosage: 100 MG
     Route: 048
  4. TAMSULOSIN HCL [Suspect]
  5. SIMVASTATIN [Suspect]
     Indication: CORONARY ARTERY DISEASE
     Dosage: 40 MG
     Route: 048
     Dates: end: 20101213
  6. CLOPIDOGREL [Suspect]
     Indication: CORONARY ARTERY DISEASE
     Dosage: 75 MG
     Route: 048
  7. TORSEMIDE [Concomitant]
  8. CLARITHROMYCIN [Concomitant]
     Indication: PNEUMONIA CHLAMYDIAL
     Dosage: 500 MG
     Dates: end: 20101213
  9. BISOPROLOL [Concomitant]

REACTIONS (2)
  - PARAPARESIS [None]
  - RHABDOMYOLYSIS [None]
